FAERS Safety Report 13645284 (Version 1)
Quarter: 2017Q2

REPORT INFORMATION
  Report Type: Spontaneous
  Country: US (occurrence: US)
  Receive Date: 20170612
  Receipt Date: 20170612
  Transmission Date: 20170830
  Serious: No
  Sender: FDA-Public Use
  Company Number: US-ROCHE-1304815

PATIENT
  Age: 60 Year
  Sex: Female
  Weight: 73.09 kg

DRUGS (15)
  1. XELODA [Suspect]
     Active Substance: CAPECITABINE
     Indication: BREAST CANCER
     Dosage: 4 TABLETS TWICE DALY FOR 14 DAYS
     Route: 048
     Dates: start: 20130828
  2. ALERTEC [Concomitant]
     Active Substance: MODAFINIL
  3. VITAMIN B6 [Concomitant]
     Active Substance: PYRIDOXINE HYDROCHLORIDE
  4. CLONIDINE. [Concomitant]
     Active Substance: CLONIDINE
  5. METHYLPHENIDATE. [Concomitant]
     Active Substance: METHYLPHENIDATE
  6. CIPROFLOXACIN. [Concomitant]
     Active Substance: CIPROFLOXACIN
  7. ATACAND [Concomitant]
     Active Substance: CANDESARTAN CILEXETIL
  8. BUPROPION. [Concomitant]
     Active Substance: BUPROPION
  9. ONDANSETRON [Concomitant]
     Active Substance: ONDANSETRON
  10. PRAVASTATIN. [Concomitant]
     Active Substance: PRAVASTATIN
  11. VITAMIN B12 [Concomitant]
     Active Substance: CYANOCOBALAMIN
  12. XELODA [Suspect]
     Active Substance: CAPECITABINE
     Route: 048
     Dates: start: 20130828
  13. LETROZOLE. [Concomitant]
     Active Substance: LETROZOLE
  14. OMEPRAZOLE. [Concomitant]
     Active Substance: OMEPRAZOLE
  15. ZOMETA [Concomitant]
     Active Substance: ZOLEDRONIC ACID

REACTIONS (4)
  - Diarrhoea [Unknown]
  - Fatigue [Unknown]
  - Palmar-plantar erythrodysaesthesia syndrome [Not Recovered/Not Resolved]
  - Abdominal discomfort [Unknown]

NARRATIVE: CASE EVENT DATE: 20140120
